FAERS Safety Report 10909242 (Version 2)
Quarter: 2015Q2

REPORT INFORMATION
  Report Type: Spontaneous
  Country: US (occurrence: US)
  Receive Date: 20150312
  Receipt Date: 20150513
  Transmission Date: 20150821
  Serious: Yes (Other)
  Sender: FDA-Public Use
  Company Number: US-ELI_LILLY_AND_COMPANY-US201503001805

PATIENT
  Age: 61 Year
  Sex: Female
  Weight: 105.3 kg

DRUGS (14)
  1. DILTIAZEM [Concomitant]
     Active Substance: DILTIAZEM
     Dosage: 300 MG, UNKNOWN
  2. HUMALOG [Suspect]
     Active Substance: INSULIN LISPRO
     Indication: TYPE 2 DIABETES MELLITUS
     Dosage: 15 U, BID
     Route: 058
  3. ALBUTEROL SULFATE. [Concomitant]
     Active Substance: ALBUTEROL SULFATE
     Dosage: 2.5 MG, UNK
  4. LANTUS [Concomitant]
     Active Substance: INSULIN GLARGINE
     Dosage: 100 U, UNKNOWN
  5. ATORVASTATIN [Concomitant]
     Active Substance: ATORVASTATIN
     Dosage: 40 MG, UNKNOWN
  6. COUMADIN [Concomitant]
     Active Substance: WARFARIN SODIUM
     Dosage: 7.5 MG, UNKNOWN
  7. LEVOTHYROXINE [Concomitant]
     Active Substance: LEVOTHYROXINE
     Dosage: 125 DF, UNKNOWN
  8. OXYBUTYNIN [Concomitant]
     Active Substance: OXYBUTYNIN
     Dosage: 5 MG, UNKNOWN
  9. PANTOPRAZOLE [Concomitant]
     Active Substance: PANTOPRAZOLE SODIUM
     Dosage: 40 MG, UNKNOWN
  10. PROAIR HFA [Concomitant]
     Active Substance: ALBUTEROL SULFATE
     Dosage: 90 DF, UNKNOWN
  11. METFORMIN [Concomitant]
     Active Substance: METFORMIN HYDROCHLORIDE
     Dosage: 500 MG, UNKNOWN
  12. HUMALOG [Suspect]
     Active Substance: INSULIN LISPRO
     Dosage: 10 U, QD
     Route: 058
  13. ADVAIR HFA [Concomitant]
     Active Substance: FLUTICASONE PROPIONATE\SALMETEROL XINAFOATE
  14. CITALOPRAM [Concomitant]
     Active Substance: CITALOPRAM HYDROBROMIDE
     Dosage: 20 MG, UNKNOWN

REACTIONS (11)
  - Cerebrovascular accident [Recovering/Resolving]
  - Mobility decreased [Unknown]
  - Communication disorder [Unknown]
  - International normalised ratio abnormal [Unknown]
  - Asthenia [Unknown]
  - Activated partial thromboplastin time prolonged [Unknown]
  - Visual field defect [Unknown]
  - Oedema peripheral [Unknown]
  - Glycosylated haemoglobin increased [Unknown]
  - Memory impairment [Unknown]
  - Blood glucose increased [Unknown]

NARRATIVE: CASE EVENT DATE: 2009
